FAERS Safety Report 8501705-3 (Version None)
Quarter: 2012Q3

REPORT INFORMATION
  Report Type: 
  Country: None (occurrence: None)
  Receive Date: 20120711
  Receipt Date: 20120705
  Transmission Date: 20120928
  Serious: No
  Sender: FDA-Public Use
  Company Number: US-BIOGENIDEC-2012BI020453

PATIENT
  Sex: Female

DRUGS (1)
  1. TYSABRI [Suspect]
     Indication: MULTIPLE SCLEROSIS
     Route: 042
     Dates: start: 20110524

REACTIONS (7)
  - WEIGHT DECREASED [None]
  - NIGHT SWEATS [None]
  - HERPES ZOSTER [None]
  - OVARIAN CYST RUPTURED [None]
  - PYREXIA [None]
  - B-LYMPHOCYTE COUNT INCREASED [None]
  - FATIGUE [None]
